FAERS Safety Report 20897932 (Version 2)
Quarter: 2022Q2

REPORT INFORMATION
  Report Type: Spontaneous
  Country: RU (occurrence: RU)
  Receive Date: 20220531
  Receipt Date: 20220602
  Transmission Date: 20220721
  Serious: Yes (Death, Other)
  Sender: FDA-Public Use
  Company Number: RU-SA-2022SA178423

PATIENT
  Age: 13 Year
  Sex: Female
  Weight: 24 kg

DRUGS (1)
  1. ALDURAZYME [Suspect]
     Active Substance: LARONIDASE
     Indication: Mucopolysaccharidosis I
     Dosage: 100 IU/KG, QW
     Route: 042
     Dates: start: 2013, end: 20220412

REACTIONS (2)
  - Maxillofacial sinus neoplasm [Fatal]
  - Endotracheal intubation complication [Fatal]

NARRATIVE: CASE EVENT DATE: 20220401
